FAERS Safety Report 7774857-0 (Version None)
Quarter: 2011Q3

REPORT INFORMATION
  Report Type: 
  Country: None (occurrence: None)
  Receive Date: 20110923
  Receipt Date: 20110919
  Transmission Date: 20111222
  Serious: Yes (Hospitalization)
  Sender: FDA-Public Use
  Company Number: BR-B.I. PHARMACEUTICALS,INC./RIDGEFIELD-2011-BP-20276BP

PATIENT
  Sex: Male
  Weight: 72 kg

DRUGS (7)
  1. DABIGATRAN [Suspect]
     Indication: CEREBROVASCULAR ACCIDENT PROPHYLAXIS
     Route: 048
     Dates: start: 20090506
  2. PROTON PUMP INHIBITOR (OMEPRAZOLE) [Concomitant]
     Indication: PROPHYLAXIS AGAINST GASTROINTESTINAL ULCER
     Route: 048
     Dates: start: 20090901
  3. HYPOLIPIDEMIA DRUG (SIMVASTATIN) [Concomitant]
     Indication: HYPERCHOLESTEROLAEMIA
     Route: 048
     Dates: start: 20090524
  4. DABIGATRAN [Suspect]
     Indication: ATRIAL FIBRILLATION
  5. GABA (BACLOFEN) [Concomitant]
     Indication: MUSCLE SPASTICITY
     Route: 048
     Dates: start: 20090901
  6. ACE INHIBITOR (ENALAPRIL) [Concomitant]
     Indication: HYPERTENSION
     Route: 048
     Dates: start: 20100504
  7. BETA BLOCKER (ATENOLOL) [Concomitant]
     Indication: HYPERTENSION
     Route: 048
     Dates: start: 20100713

REACTIONS (1)
  - ISCHAEMIC STROKE [None]
